FAERS Safety Report 4395813-9 (Version None)
Quarter: 2004Q3

REPORT INFORMATION
  Report Type: 
  Country: None (occurrence: None)
  Receive Date: 20040713
  Receipt Date: 20040607
  Transmission Date: 20050211
  Serious: Yes (Death, Hospitalization)
  Sender: FDA-Public Use
  Company Number: US-ROCHE-373612

PATIENT
  Age: 56 Year
  Sex: Female
  Weight: 69.9 kg

DRUGS (9)
  1. CAPECITABINE [Suspect]
     Dosage: 14 DAYS TREATMENT/ ONE WEEK REST. ACTUAL DOSE 1000 MG.
     Route: 048
     Dates: start: 20040601, end: 20040607
  2. OXALIPLATIN [Suspect]
     Dosage: ACTUAL DOSE 50 MG.
     Route: 042
     Dates: start: 20040601, end: 20040607
  3. VALIUM [Concomitant]
  4. BENADRYL [Concomitant]
  5. DECADRON [Concomitant]
  6. ANZEMET [Concomitant]
  7. VITAMIN B6 [Concomitant]
  8. LEXAPRO [Concomitant]
  9. TAGAMET [Concomitant]

REACTIONS (8)
  - BREAST CANCER METASTATIC [None]
  - CARDIAC TAMPONADE [None]
  - DYSPNOEA [None]
  - METASTASES TO LUNG [None]
  - OEDEMA PERIPHERAL [None]
  - PLEURAL EFFUSION [None]
  - RESPIRATORY FAILURE [None]
  - URINARY TRACT INFECTION ENTEROCOCCAL [None]
